FAERS Safety Report 5759427-8 (Version None)
Quarter: 2008Q2

REPORT INFORMATION
  Report Type: 
  Country: None (occurrence: None)
  Receive Date: 20080605
  Receipt Date: 20080603
  Transmission Date: 20081010
  Serious: Yes (Life-Threatening, Hospitalization)
  Sender: FDA-Public Use
  Company Number: FR-BRISTOL-MYERS SQUIBB COMPANY-14207997

PATIENT
  Age: 72 Year
  Sex: Male

DRUGS (10)
  1. METFORMIN HCL [Suspect]
     Route: 048
     Dates: end: 20080426
  2. COAPROVEL TABS [Suspect]
     Route: 048
     Dates: end: 20080426
  3. DAFALGAN [Suspect]
     Dosage: CACHET
     Route: 048
     Dates: end: 20080426
  4. CARDENSIEL [Suspect]
     Dosage: FORMULATION: TABLET
     Route: 048
     Dates: end: 20080426
  5. ASPIRIN [Suspect]
     Dosage: FORMULATION: POWDER FOR ORAL SOLUTION
     Route: 048
     Dates: end: 20080426
  6. CRESTOR [Suspect]
     Dosage: FORMULATION: TABLET
     Route: 048
     Dates: end: 20080426
  7. AMAREL [Suspect]
     Dosage: FORMULATION: TABLET
     Route: 048
     Dates: end: 20080426
  8. NEXIUM [Suspect]
     Dosage: FORMULATION: TABLET
     Route: 048
     Dates: end: 20080426
  9. XATRAL [Suspect]
     Dosage: FORMULATION: TABLET
     Route: 048
     Dates: end: 20080426
  10. NOCTRAN [Suspect]
     Dosage: FORMULATION: TABLET
     Route: 048
     Dates: end: 20080426

REACTIONS (9)
  - ACIDOSIS [None]
  - ATRIOVENTRICULAR BLOCK COMPLETE [None]
  - BRADYCARDIA [None]
  - CONFUSIONAL STATE [None]
  - DIARRHOEA [None]
  - HYPERKALAEMIA [None]
  - HYPOTENSION [None]
  - RENAL FAILURE [None]
  - RESPIRATORY TRACT CONGESTION [None]
